FAERS Safety Report 8587086-8 (Version None)
Quarter: 2012Q3

REPORT INFORMATION
  Report Type: 
  Country: None (occurrence: None)
  Receive Date: 20120810
  Receipt Date: 20120727
  Transmission Date: 20120928
  Serious: No
  Sender: FDA-Public Use
  Company Number: US-009507513-1207USA006438

PATIENT

DRUGS (4)
  1. CLARITIN [Suspect]
     Indication: HYPERSENSITIVITY
     Dosage: 5 MG, QPM
     Route: 048
     Dates: start: 20120619
  2. SYNTHROID [Concomitant]
     Indication: THYROID DISORDER
     Dosage: 75 MG, UNKNOWN
  3. AGGRENOX [Concomitant]
     Indication: THYROID STIMULATING IMMUNOGLOBULIN
     Dosage: 25-200M, UNK
  4. SIMVASTATIN [Concomitant]
     Indication: BLOOD CHOLESTEROL
     Dosage: 20 MG, UNKNOWN

REACTIONS (2)
  - FATIGUE [None]
  - SOMNOLENCE [None]
